FAERS Safety Report 8743613 (Version 2)
Quarter: 2013Q1

REPORT INFORMATION
  Report Type: Spontaneous
  Country: US (occurrence: US)
  Receive Date: 20120824
  Receipt Date: 20130320
  Transmission Date: 20140127
  Serious: Yes (Hospitalization)
  Sender: FDA-Public Use
  Company Number: US-ELI_LILLY_AND_COMPANY-US201208004576

PATIENT
  Sex: Female

DRUGS (13)
  1. FORTEO [Suspect]
     Indication: OSTEOPOROSIS
     Dosage: 20 UG, QD
     Dates: start: 20120514, end: 20120610
  2. LEVOFLOXACIN [Concomitant]
     Dosage: UNK, QD
  3. FOLBEE [Concomitant]
     Dosage: UNK, BID
  4. FAMOTIDINE [Concomitant]
     Dosage: 40 MG, BID
  5. VITAMIN D [Concomitant]
     Dosage: 50000 IU, WEEKLY (1/W)
  6. DOXYCYCLINE HYDROCHLORIDE [Concomitant]
     Dosage: 100 MG, BID
  7. CITALOPRAM [Concomitant]
     Dosage: 10 MG, QD
  8. ONDANSETRON [Concomitant]
     Indication: NAUSEA
     Dosage: 4 MG, PRN
  9. FERROUS GLUCONATE [Concomitant]
     Dosage: 324 MG, QD
  10. CYANOCOBALAMIN [Concomitant]
     Dosage: 1000 UG, MONTHLY (1/M)
  11. CARVEDILOL [Concomitant]
     Dosage: 3.125 MG, QD
  12. PROBIOTICS [Concomitant]
     Dosage: UNK, BID
  13. HYDROCODONE W/ACETAMINOPHEN [Concomitant]
     Indication: PAIN
     Dosage: UNK, PRN

REACTIONS (9)
  - Pneumothorax [Unknown]
  - Renal failure acute [Unknown]
  - Organ failure [Unknown]
  - Appendicitis [Unknown]
  - Appendicitis perforated [Unknown]
  - Pneumonia [Unknown]
  - Pain [Unknown]
  - Dyspnoea [Unknown]
  - Activities of daily living impaired [Unknown]
